FAERS Safety Report 5765641-8 (Version None)
Quarter: 2008Q2

REPORT INFORMATION
  Report Type: 
  Country: None (occurrence: None)
  Receive Date: 20080611
  Receipt Date: 20080530
  Transmission Date: 20081010
  Serious: Yes (Hospitalization, Disabling)
  Sender: FDA-Public Use
  Company Number: PT-ALLERGAN-0806897US

PATIENT
  Sex: Female
  Weight: 60 kg

DRUGS (5)
  1. TROSPIUM CHLORIDE [Suspect]
     Indication: URINARY INCONTINENCE
     Dosage: 40 MG, UNK
     Route: 048
     Dates: start: 20070410
  2. ACETAMINOPHEN [Interacting]
     Indication: BACK PAIN
     Dosage: 362.5 MG, UNK
     Route: 048
     Dates: start: 20070410, end: 20070410
  3. TRAMADOL HCL [Interacting]
     Indication: BACK PAIN
     Dosage: 362.5 MG, UNK
     Route: 048
     Dates: start: 20070410, end: 20070410
  4. RUPATADINE FUMARATE [Concomitant]
     Indication: RHINITIS
     Route: 048
     Dates: start: 20060101
  5. ENALAPRIL MALEATE [Concomitant]
     Indication: HYPERTENSION
     Dosage: 20 MG, UNK
     Route: 048
     Dates: start: 20020101

REACTIONS (4)
  - APHASIA [None]
  - DRUG INTERACTION [None]
  - PARESIS [None]
  - TONIC CONVULSION [None]
